FAERS Safety Report 4296934-1 (Version None)
Quarter: 2004Q1

REPORT INFORMATION
  Report Type: 
  Country: None (occurrence: None)
  Receive Date: 20040126
  Receipt Date: 20030822
  Transmission Date: 20041129
  Serious: No
  Sender: FDA-Public Use
  Company Number: USA030845124

PATIENT
  Age: 40 Year
  Sex: Male

DRUGS (5)
  1. PROZAC [Suspect]
     Indication: ANGER
  2. PROZAC [Suspect]
     Indication: BIPOLAR DISORDER
  3. STRATTERA [Suspect]
     Indication: ATTENTION DEFICIT/HYPERACTIVITY DISORDER
     Dosage: 40 MG
     Dates: start: 20030821
  4. VALIUM [Concomitant]
  5. DEPAKOTE [Concomitant]

REACTIONS (4)
  - EJACULATION DISORDER [None]
  - NAUSEA [None]
  - SEDATION [None]
  - URINARY RETENTION [None]
